FAERS Safety Report 18425694 (Version 1)
Quarter: 2020Q4

REPORT INFORMATION
  Report Type: Spontaneous
  Country: US (occurrence: US)
  Receive Date: 20201025
  Receipt Date: 20201025
  Transmission Date: 20210114
  Serious: Yes (Hospitalization)
  Sender: FDA-Public Use
  Company Number: None

PATIENT
  Age: 55 Year
  Sex: Female
  Weight: 90.4 kg

DRUGS (19)
  1. ALBUTEROL MDI 90 MCG/PUFF INHALATION [Concomitant]
  2. HYDROXYZINE PAMOATE 25 MG ORAL CAPSULE [Concomitant]
  3. TRULICITY PEN 0.75/0.5 ML SUBCUT SOLUTION [Concomitant]
  4. ONDANSETRON 4 MG ODT [Concomitant]
  5. HYDROCODONE-ACETAMINOPHEN 10MG/325MG ORAL TABLET [Concomitant]
  6. METFORMIN 500 MG ORAL TABLET ER [Concomitant]
  7. PRAZOSIN 1 MG ORAL CAPSULE [Concomitant]
  8. ALPRAZOLAM 2 MG ORAL TABLET [Concomitant]
  9. HUMALOG 100 UNITS/ML INJECTION [Concomitant]
  10. METHIMAZOLE 10 MG ORAL TABLET [Concomitant]
  11. NAPROXEN 500MG ORAL TABLET [Concomitant]
  12. TOUJEO SOLOSTAR 300 UNITS/ML SUBCUT SOLUTION [Concomitant]
  13. CYCLOBENZAPRINE 10 MG ORAL TABLET [Concomitant]
  14. DULOXETINE 60 MG DR CAPSULE [Concomitant]
  15. ROPINIROLE 4 MG ORAL TABLET [Concomitant]
  16. DULOXETINE 30 MG DR CAPSULE [Concomitant]
  17. FLOVENT HFA 220 MCG/INH INHALATION AEROSOL [Concomitant]
  18. EMPAGLIFLOZIN [Suspect]
     Active Substance: EMPAGLIFLOZIN
     Indication: TYPE 2 DIABETES MELLITUS
     Route: 048
     Dates: start: 20190815, end: 20201022
  19. SPIRONOLACTONE 50 MG ORAL TABLET [Concomitant]

REACTIONS (8)
  - Asthenia [None]
  - Syncope [None]
  - Fatigue [None]
  - Pain [None]
  - Nausea [None]
  - Diabetic ketoacidosis [None]
  - Malaise [None]
  - Vomiting [None]

NARRATIVE: CASE EVENT DATE: 20201022
